FAERS Safety Report 17728417 (Version 1)
Quarter: 2020Q2

REPORT INFORMATION
  Report Type: Spontaneous
  Country: US (occurrence: US)
  Receive Date: 20200429
  Receipt Date: 20200429
  Transmission Date: 20200714
  Serious: Yes (Other)
  Sender: FDA-Public Use
  Company Number: None

PATIENT
  Age: 67 Year
  Sex: Female
  Weight: 85.28 kg

DRUGS (1)
  1. OZEMPIC [Suspect]
     Active Substance: SEMAGLUTIDE
     Indication: TYPE 2 DIABETES MELLITUS
     Dosage: ?          QUANTITY:1 MG MILLIGRAM(S);?
     Route: 058
     Dates: start: 20200314

REACTIONS (3)
  - Alopecia [None]
  - Pustule [None]
  - Skin haemorrhage [None]

NARRATIVE: CASE EVENT DATE: 20200406
